FAERS Safety Report 10215399 (Version 2)
Quarter: 2014Q3

REPORT INFORMATION
  Report Type: Spontaneous
  Country: SE (occurrence: SE)
  Receive Date: 20140604
  Receipt Date: 20140711
  Transmission Date: 20150326
  Serious: Yes (Other)
  Sender: FDA-Public Use
  Company Number: SE-ABBVIE-14K-150-1243971-00

PATIENT
  Sex: Female

DRUGS (3)
  1. ERGENYL [Suspect]
     Active Substance: VALPROIC ACID
     Indication: BIPOLAR DISORDER
  2. ERGENYL [Suspect]
     Active Substance: VALPROIC ACID
     Indication: PSYCHOTIC DISORDER
  3. ERGENYL [Suspect]
     Active Substance: VALPROIC ACID
     Indication: DEPRESSED MOOD

REACTIONS (4)
  - Lacrimation increased [Unknown]
  - Stevens-Johnson syndrome [Unknown]
  - Contusion [Unknown]
  - Gastrointestinal haemorrhage [Unknown]
